FAERS Safety Report 8769685 (Version 2)
Quarter: 2012Q4

REPORT INFORMATION
  Report Type: Report from Study
  Country: US (occurrence: US)
  Receive Date: 20120905
  Receipt Date: 20121031
  Transmission Date: 20130627
  Serious: Yes (Hospitalization)
  Sender: FDA-Public Use
  Company Number: US-US-EMD SERONO, INC.-7158268

PATIENT
  Age: 59 Year
  Sex: Female

DRUGS (1)
  1. REBIF [Suspect]
     Indication: MULTIPLE SCLEROSIS
     Route: 058
     Dates: start: 20060804

REACTIONS (5)
  - Myocardial infarction [Recovered/Resolved]
  - Thyroid disorder [Unknown]
  - Intention tremor [Unknown]
  - Injection site erosion [Recovering/Resolving]
  - Injection site bruising [Unknown]
